FAERS Safety Report 9525057 (Version 1)
Quarter: 2013Q3

REPORT INFORMATION
  Report Type: Spontaneous
  Country: US (occurrence: None)
  Receive Date: 20130913
  Receipt Date: 20130913
  Transmission Date: 20140515
  Serious: Yes (Other)
  Sender: FDA-Public Use
  Company Number: None

PATIENT
  Age: 30 Year
  Sex: Female

DRUGS (1)
  1. ENBREL SURECLICK 50MG AMGEN INC [Suspect]
     Indication: RHEUMATOID ARTHRITIS
     Dosage: 50MG  WEEKLY  SUB-Q
     Route: 058

REACTIONS (2)
  - Migraine [None]
  - Haematochezia [None]
